FAERS Safety Report 11940813 (Version 6)
Quarter: 2017Q2

REPORT INFORMATION
  Report Type: Report from Study
  Country: TH (occurrence: TH)
  Receive Date: 20160122
  Receipt Date: 20170406
  Transmission Date: 20170829
  Serious: Yes (Other)
  Sender: FDA-Public Use
  Company Number: PHHO2016TH000997

PATIENT
  Age: 51 Year
  Sex: Female
  Weight: 79 kg

DRUGS (9)
  1. TRAMADOL. [Concomitant]
     Active Substance: TRAMADOL
     Indication: PSORIATIC ARTHROPATHY
     Dosage: 50 MG, QD
     Route: 048
     Dates: start: 20110809
  2. TRANXENE T-TAB [Concomitant]
     Active Substance: CLORAZEPATE DIPOTASSIUM
     Indication: MYOFASCIAL PAIN SYNDROME
     Dosage: 5 MG, QD
     Route: 048
     Dates: start: 20111012
  3. NORGESIC [Concomitant]
     Active Substance: ASPIRIN\CAFFEINE\ORPHENADRINE CITRATE
     Indication: MYOFASCIAL PAIN SYNDROME
     Dosage: 1 DF, TID
     Route: 048
     Dates: start: 20111012
  4. NAPROXEN. [Concomitant]
     Active Substance: NAPROXEN
     Indication: PSORIATIC ARTHROPATHY
     Dosage: 250 MG, QD
     Route: 048
     Dates: start: 20110809
  5. FOLIC ACID. [Concomitant]
     Active Substance: FOLIC ACID
     Indication: VITAMIN SUPPLEMENTATION
     Dosage: 5 MG, QD
     Route: 048
     Dates: start: 20111011
  6. OMEPRAZOLE. [Concomitant]
     Active Substance: OMEPRAZOLE
     Indication: GASTROOESOPHAGEAL REFLUX DISEASE
     Dosage: 20 MG, QD
     Route: 048
     Dates: start: 20110408
  7. OMEPRAZOLE. [Concomitant]
     Active Substance: OMEPRAZOLE
     Indication: GASTRIC DISORDER
  8. AIN457 [Suspect]
     Active Substance: SECUKINUMAB
     Indication: PSORIATIC ARTHROPATHY
     Dosage: 75 MG, UNK
     Route: 058
     Dates: start: 20140103, end: 20151204
  9. VITA B CO [Concomitant]
     Indication: VITAMIN SUPPLEMENTATION
     Dosage: 1 DF, TID
     Route: 048
     Dates: start: 20110519

REACTIONS (2)
  - Polyarteritis nodosa [Recovered/Resolved]
  - Invasive ductal breast carcinoma [Recovering/Resolving]

NARRATIVE: CASE EVENT DATE: 20150814
